FAERS Safety Report 15790990 (Version 1)
Quarter: 2019Q1

REPORT INFORMATION
  Report Type: Spontaneous
  Country: IT (occurrence: IT)
  Receive Date: 20190104
  Receipt Date: 20190104
  Transmission Date: 20190417
  Serious: Yes (Other)
  Sender: FDA-Public Use
  Company Number: IT-BAYER-2019-000540

PATIENT
  Sex: Female

DRUGS (2)
  1. PREDNISONE. [Concomitant]
     Active Substance: PREDNISONE
     Dosage: 12.5 MG, QD
  2. ACETYLSALICYLIC ACID({=100 MG) [Suspect]
     Active Substance: ASPIRIN

REACTIONS (9)
  - Epistaxis [None]
  - Maternal exposure during pregnancy [None]
  - Off label use [None]
  - Blindness [None]
  - Haemoglobinuria [None]
  - Pre-eclampsia [None]
  - Haemolytic anaemia [None]
  - Caesarean section [None]
  - Premature delivery [None]
